FAERS Safety Report 14406524 (Version 1)
Quarter: 2018Q1

REPORT INFORMATION
  Report Type: Spontaneous
  Country: US (occurrence: US)
  Receive Date: 20180118
  Receipt Date: 20180118
  Transmission Date: 20180509
  Serious: Yes (Other)
  Sender: FDA-Public Use
  Company Number: US-PFIZER INC-2018021753

PATIENT
  Sex: Female

DRUGS (20)
  1. BREO ELLIPTA [Concomitant]
     Active Substance: FLUTICASONE FUROATE\VILANTEROL TRIFENATATE
     Indication: ASTHMA
     Dosage: 100 MG, QD
  2. GABAPENTIN. [Concomitant]
     Active Substance: GABAPENTIN
     Dosage: 300 MG, TID
  3. PRAMIPEXOLE. [Concomitant]
     Active Substance: PRAMIPEXOLE
     Dosage: 125 MG, QD
  4. ASPIRIN. [Concomitant]
     Active Substance: ASPIRIN
     Dosage: 81 MG, QD
  5. METOPROLOL. [Concomitant]
     Active Substance: METOPROLOL
     Dosage: 25 MG, BID
  6. TIZANIDINE. [Concomitant]
     Active Substance: TIZANIDINE
     Dosage: 4 MG, BID
  7. AMLODIPINE [Concomitant]
     Active Substance: AMLODIPINE BESYLATE
     Dosage: 5 MG, QD
  8. TRAMADOL. [Concomitant]
     Active Substance: TRAMADOL
     Dosage: 50 MG, BID
  9. HYDROCHLOROTHIAZIDE. [Concomitant]
     Active Substance: HYDROCHLOROTHIAZIDE
     Indication: BLOOD PRESSURE MEASUREMENT
     Dosage: 12.5 MG, UNK
  10. MONTELUKAST [Concomitant]
     Active Substance: MONTELUKAST SODIUM
     Dosage: 10 MG, QD
  11. METFORMIN [Concomitant]
     Active Substance: METFORMIN HYDROCHLORIDE
     Dosage: 500 MG, BID
  12. DULCOLAX (BISACODYL) [Concomitant]
     Active Substance: BISACODYL
     Indication: DIVERTICULITIS
     Dosage: TAKE 2 A DAY FOR 7 DAYS
  13. AMOXICILIN + ACID CLAVULANIC MERCK GENERICOS [Concomitant]
     Active Substance: AMOXICILLIN\CLAVULANIC ACID
     Dosage: UNK
  14. PROAIR HFA [Concomitant]
     Active Substance: ALBUTEROL SULFATE
     Dosage: 4 TIMES A DAY AS NEEDED
  15. OMEPRAZOLE. [Concomitant]
     Active Substance: OMEPRAZOLE
     Dosage: 20 MG, BID
  16. EPINEPHRINE. [Suspect]
     Active Substance: EPINEPHRINE
     Indication: HYPERSENSITIVITY
     Dosage: 1 DF, UNK
     Route: 030
  17. MELOXICAM. [Concomitant]
     Active Substance: MELOXICAM
     Dosage: 15 MG, QD
  18. ATORVASTATIN [Concomitant]
     Active Substance: ATORVASTATIN
     Dosage: 10 MG, UNK
  19. VENLAFAXINE [Concomitant]
     Active Substance: VENLAFAXINE HYDROCHLORIDE
     Dosage: 75 MG, BID
  20. ALBUTEROL /00139501/ [Concomitant]
     Active Substance: ALBUTEROL
     Dosage: EVERY 4 HOURS BY NEBULIZER, QD

REACTIONS (8)
  - Product quality issue [Recovered/Resolved]
  - Heart rate decreased [Unknown]
  - Drug ineffective [Unknown]
  - Device use issue [Recovered/Resolved]
  - Dyspnoea [Recovered/Resolved]
  - Device failure [Recovered/Resolved]
  - Throat tightness [Recovered/Resolved]
  - Blood pressure decreased [Unknown]

NARRATIVE: CASE EVENT DATE: 20180106
